FAERS Safety Report 7050637-9 (Version None)
Quarter: 2010Q4

REPORT INFORMATION
  Report Type: 
  Country: None (occurrence: None)
  Receive Date: 20101018
  Receipt Date: 20101007
  Transmission Date: 20110411
  Serious: Yes (Hospitalization)
  Sender: FDA-Public Use
  Company Number: CH-GENENTECH-307924

PATIENT
  Age: 73 Year
  Sex: Female
  Weight: 73 kg

DRUGS (1)
  1. MABTHERA [Suspect]
     Indication: NON-HODGKIN'S LYMPHOMA
     Dosage: 700 MG, UNK
     Route: 041
     Dates: start: 20100701, end: 20100817

REACTIONS (2)
  - PNEUMONITIS [None]
  - PULMONARY EMBOLISM [None]
